FAERS Safety Report 5213917-5 (Version None)
Quarter: 2007Q1

REPORT INFORMATION
  Report Type: 
  Country: None (occurrence: None)
  Receive Date: 20070117
  Receipt Date: 20070109
  Transmission Date: 20070707
  Serious: Yes (Hospitalization)
  Sender: FDA-Public Use
  Company Number: 163-21880-07010457

PATIENT
  Age: 80 Year
  Sex: Female

DRUGS (2)
  1. REVLIMID [Suspect]
     Indication: MULTIPLE MYELOMA
     Dosage: ORAL
     Route: 048
     Dates: start: 20061025
  2. DEXAMETHASONE TAB [Suspect]
     Indication: MULTIPLE MYELOMA

REACTIONS (7)
  - BIOPSY BONE MARROW ABNORMAL [None]
  - CARDIAC DISORDER [None]
  - DRUG TOXICITY [None]
  - HYPERPLASIA [None]
  - LEUKOPENIA [None]
  - RENAL FAILURE [None]
  - THROMBOCYTOPENIA [None]
